FAERS Safety Report 5026657-2 (Version None)
Quarter: 2006Q2

REPORT INFORMATION
  Report Type: 
  Country: None (occurrence: None)
  Receive Date: 20060615
  Receipt Date: 20060303
  Transmission Date: 20061013
  Serious: Yes (Hospitalization)
  Sender: FDA-Public Use
  Company Number: JP-JPN-A200600830

PATIENT
  Age: 20 Year
  Sex: Female
  Weight: 43 kg

DRUGS (2)
  1. VALTREX [Suspect]
     Indication: HERPES SIMPLEX
     Route: 048
     Dates: start: 20060221, end: 20060222
  2. ZOVIRAX [Concomitant]
     Indication: HERPES SIMPLEX
     Dosage: .4G PER DAY
     Route: 062
     Dates: start: 20060221

REACTIONS (3)
  - ERYTHEMA MULTIFORME [None]
  - PRURITUS [None]
  - TOXIC EPIDERMAL NECROLYSIS [None]
